FAERS Safety Report 9792780 (Version 1)
Quarter: 2014Q1

REPORT INFORMATION
  Report Type: Spontaneous
  Country: US (occurrence: US)
  Receive Date: 20140102
  Receipt Date: 20140102
  Transmission Date: 20141002
  Serious: No
  Sender: FDA-Public Use
  Company Number: US-SA-2013SA119530

PATIENT
  Age: 58 Year
  Sex: Female

DRUGS (14)
  1. AUBAGIO [Suspect]
     Indication: MULTIPLE SCLEROSIS
     Route: 048
     Dates: start: 20130913
  2. REQUIP [Concomitant]
  3. PROTONIX [Concomitant]
  4. XANAX [Concomitant]
  5. LASIX [Concomitant]
  6. LIPITOR [Concomitant]
  7. ATENOLOL [Concomitant]
  8. LISINOPRIL [Concomitant]
  9. ZOFRAN [Concomitant]
  10. TRAZODONE [Concomitant]
  11. LEVOTHYROXINE [Concomitant]
  12. MECLIZINE [Concomitant]
  13. CELEXA [Concomitant]
  14. POTASSIUM CHLORIDE [Concomitant]

REACTIONS (2)
  - Dizziness [Unknown]
  - Paraesthesia [Unknown]
